FAERS Safety Report 16452274 (Version 1)
Quarter: 2019Q2

REPORT INFORMATION
  Report Type: Spontaneous
  Country: US (occurrence: US)
  Receive Date: 20190619
  Receipt Date: 20190619
  Transmission Date: 20190711
  Serious: No
  Sender: FDA-Public Use
  Company Number: US-VERTEX PHARMACEUTICALS-2019-005536

PATIENT
  Age: 2 Year
  Sex: Male

DRUGS (1)
  1. ORKAMBI [Suspect]
     Active Substance: IVACAFTOR\LUMACAFTOR
     Indication: CYSTIC FIBROSIS
     Dosage: 100/125 MG GRANULES, FREQUENCY UNKNOWN
     Route: 048
     Dates: start: 201902, end: 201906

REACTIONS (3)
  - Aggression [Recovered/Resolved]
  - Respiratory rate increased [Recovered/Resolved]
  - Weight gain poor [Recovered/Resolved]

NARRATIVE: CASE EVENT DATE: 20190601
